FAERS Safety Report 4933892-8 (Version None)
Quarter: 2006Q1

REPORT INFORMATION
  Report Type: 
  Country: None (occurrence: None)
  Receive Date: 20060307
  Receipt Date: 20060123
  Transmission Date: 20060701
  Serious: Yes (Hospitalization)
  Sender: FDA-Public Use
  Company Number: US-RB-2658-2006

PATIENT
  Sex: Female
  Weight: 63.56 kg

DRUGS (5)
  1. SUBOXONE [Suspect]
     Route: 060
     Dates: start: 20060120
  2. AMOXICILLIN [Concomitant]
     Route: 048
     Dates: start: 20060118
  3. ESCITALOPRAM OXALATE [Concomitant]
     Indication: DEPRESSION
     Dosage: MD REPORTS STARTED THIS PRIOR TO HOSPITALIZATION
     Route: 048
  4. TRAZODONE [Concomitant]
     Dosage: MD REPORTS PRIOR TO HOSPITALIZATION
     Route: 048
  5. NICOTINE [Concomitant]

REACTIONS (1)
  - RASH [None]
